FAERS Safety Report 14227952 (Version 5)
Quarter: 2017Q4

REPORT INFORMATION
  Report Type: Spontaneous
  Country: US (occurrence: US)
  Receive Date: 20171127
  Receipt Date: 20171228
  Transmission Date: 20180321
  Serious: Yes (Hospitalization)
  Sender: FDA-Public Use
  Company Number: US-PFIZER INC-2017503800

PATIENT
  Age: 73 Year
  Sex: Female
  Weight: 44.45 kg

DRUGS (3)
  1. EFFEXOR [Concomitant]
     Active Substance: VENLAFAXINE HYDROCHLORIDE
     Indication: DEPRESSION
     Dosage: 150 MG, UNK
     Dates: start: 2011
  2. IBRANCE [Suspect]
     Active Substance: PALBOCICLIB
     Indication: BREAST CANCER METASTATIC
     Dosage: 125 MG, CYCLIC (21 DAYS AND OFF FOR 1 WEEK)
     Route: 048
     Dates: start: 201704
  3. EFFEXOR [Concomitant]
     Active Substance: VENLAFAXINE HYDROCHLORIDE
     Dosage: 225 MG, UNK

REACTIONS (5)
  - Fatigue [Unknown]
  - Immune system disorder [Unknown]
  - Post-traumatic stress disorder [Recovered/Resolved]
  - Neoplasm progression [Unknown]
  - Physical assault [Unknown]

NARRATIVE: CASE EVENT DATE: 201704
